FAERS Safety Report 6357696-7 (Version None)
Quarter: 2009Q3

REPORT INFORMATION
  Report Type: 
  Country: None (occurrence: None)
  Receive Date: 20090911
  Receipt Date: 20090903
  Transmission Date: 20100115
  Serious: Yes (Hospitalization)
  Sender: FDA-Public Use
  Company Number: AE-2009-151

PATIENT
  Age: 76 Year
  Sex: Male

DRUGS (3)
  1. FUROSEMIDE [Suspect]
     Indication: OEDEMA
     Dosage: 40MG, ORAL
     Route: 048
  2. RAMIPRIL [Suspect]
     Indication: CARDIAC FAILURE CONGESTIVE
     Dosage: 5MG, ORAL
     Route: 048
  3. IBUPROFEN [Suspect]
     Indication: CARDIAC FAILURE CONGESTIVE

REACTIONS (2)
  - OFF LABEL USE [None]
  - RENAL FAILURE [None]
